FAERS Safety Report 8790433 (Version 1)
Quarter: 2012Q4

REPORT INFORMATION
  Report Type: Spontaneous
  Country: US (occurrence: None)
  Receive Date: 20120911
  Receipt Date: 20120911
  Transmission Date: 20130627
  Serious: Yes (Other)
  Sender: FDA-Public Use
  Company Number: None

PATIENT
  Age: 23 Year
  Sex: Female
  Weight: 48.54 kg

DRUGS (1)
  1. NUCYNTA ER [Suspect]
     Indication: PELVIC PAIN
     Dosage: 2x/day
     Dates: start: 20120904, end: 20120909

REACTIONS (8)
  - Nausea [None]
  - Paranoia [None]
  - Anxiety [None]
  - Sleep terror [None]
  - Feeling abnormal [None]
  - Vision blurred [None]
  - Psychomotor skills impaired [None]
  - Heart rate increased [None]
